FAERS Safety Report 9355715 (Version 2)
Quarter: 2013Q3

REPORT INFORMATION
  Report Type: Spontaneous
  Country: JP (occurrence: JP)
  Receive Date: 20130619
  Receipt Date: 20130715
  Transmission Date: 20140515
  Serious: Yes (Other)
  Sender: FDA-Public Use
  Company Number: JP-PFIZER INC-2013141674

PATIENT
  Age: 73 Year
  Sex: Male
  Weight: 70 kg

DRUGS (16)
  1. LYRICA [Suspect]
     Indication: NEURALGIA
     Dosage: 25 MG, 1X/DAY
     Route: 048
     Dates: start: 20121227, end: 20130206
  2. LYRICA [Suspect]
     Dosage: 75 MG, 1X/DAY
     Route: 048
     Dates: start: 20130207, end: 20130426
  3. LASIX [Concomitant]
     Indication: ASCITES
     Dosage: 40 MG, 2X/DAY
     Route: 048
     Dates: start: 200809
  4. ALDACTONE-A [Concomitant]
     Indication: ASCITES
     Dosage: 25 MG, 1X/DAY
     Route: 048
     Dates: start: 200809
  5. URINORM [Concomitant]
     Indication: GOUT
     Dosage: 50 MG, 1X/DAY
     Route: 048
     Dates: start: 20111005
  6. AMINOLEBAN EN [Concomitant]
     Indication: HEPATIC ENCEPHALOPATHY
     Dosage: 50 G, 1X/DAY
     Route: 048
     Dates: start: 20111005
  7. ROHYPNOL [Concomitant]
     Indication: INSOMNIA
     Dosage: 2 MG, 1X/DAY
     Route: 048
     Dates: start: 20110617
  8. ZYRTEC [Concomitant]
     Indication: PRURITUS
     Dosage: 10 MG, 1X/DAY
     Route: 048
     Dates: start: 20090210
  9. TAKEPRON [Concomitant]
     Indication: GASTRIC ULCER
     Dosage: 15 MG, 1X/DAY
     Route: 048
     Dates: start: 20110617
  10. ALLOPURINOL [Concomitant]
     Indication: GOUT
     Dosage: 100 MG, 2X/DAY
     Route: 048
     Dates: start: 200909
  11. MAALOX [Concomitant]
     Indication: OESOPHAGITIS
     Dosage: 1.2 G, 3X/DAY
     Route: 048
     Dates: start: 200907
  12. CEREKINON [Concomitant]
     Indication: IRRITABLE BOWEL SYNDROME
     Dosage: 100 MG, 3X/DAY
     Route: 048
     Dates: start: 200809
  13. MONILAC [Concomitant]
     Indication: HEPATIC ENCEPHALOPATHY
     Dosage: 10 ML, 3X/DAY
     Route: 048
     Dates: start: 20110617
  14. MUCOSOLVAN [Concomitant]
     Indication: COUGH
     Dosage: 15 MG, 3X/DAY
     Route: 048
     Dates: start: 20090613
  15. ASTOMIN [Concomitant]
     Indication: COUGH
     Dosage: 10 MG, 3X/DAY
     Route: 048
     Dates: start: 20090613
  16. LEBENIN S [Concomitant]
     Indication: DIARRHOEA
     Dosage: 1.0 G, 3X/DAY
     Route: 048
     Dates: start: 20090627

REACTIONS (2)
  - Asterixis [Recovered/Resolved]
  - Drug ineffective [Unknown]
